FAERS Safety Report 5969042-9 (Version None)
Quarter: 2008Q4

REPORT INFORMATION
  Report Type: 
  Country: None (occurrence: None)
  Receive Date: 20081126
  Receipt Date: 20081118
  Transmission Date: 20090506
  Serious: Yes (Hospitalization)
  Sender: FDA-Public Use
  Company Number: US-WYE-H04198008

PATIENT
  Sex: Male
  Weight: 99.1 kg

DRUGS (11)
  1. AMIODARONE HCL [Suspect]
     Indication: ATRIAL FIBRILLATION
     Route: 048
     Dates: start: 20071024, end: 20080825
  2. ZOCOR [Concomitant]
  3. POTASSIUM CHLORIDE [Concomitant]
  4. LISINOPRIL [Concomitant]
  5. CLARITIN [Concomitant]
  6. HYTRIN [Concomitant]
  7. NORVASC [Concomitant]
  8. METOLAZONE [Suspect]
  9. WARFARIN SODIUM [Concomitant]
     Dosage: UNKNOWN
     Route: 065
     Dates: end: 20080403
  10. LASIX [Suspect]
  11. ZETIA [Concomitant]

REACTIONS (1)
  - SYNCOPE [None]
